FAERS Safety Report 5469450-9 (Version None)
Quarter: 2007Q3

REPORT INFORMATION
  Report Type: 
  Country: None (occurrence: None)
  Receive Date: 20070925
  Receipt Date: 20070925
  Transmission Date: 20080115
  Serious: Yes (Hospitalization)
  Sender: FDA-Public Use
  Company Number: None

PATIENT
  Sex: Female
  Weight: 70 kg

DRUGS (3)
  1. TEMOZOLOMIDE [Suspect]
     Dosage: 2625 MG
  2. TEMOZOLOMIDE [Suspect]
  3. TEMOZOLOMIDE [Suspect]

REACTIONS (15)
  - ANOREXIA [None]
  - ASTHENIA [None]
  - BALANCE DISORDER [None]
  - DEEP VEIN THROMBOSIS [None]
  - FALL [None]
  - GAIT DISTURBANCE [None]
  - GRIP STRENGTH DECREASED [None]
  - MEMORY IMPAIRMENT [None]
  - MENTAL DISORDER [None]
  - PERFORMANCE STATUS DECREASED [None]
  - PYREXIA [None]
  - URINARY TRACT INFECTION [None]
  - VENOUS THROMBOSIS LIMB [None]
  - VISUAL FIELD DEFECT [None]
  - WEIGHT DECREASED [None]
